FAERS Safety Report 6501101-4 (Version None)
Quarter: 2009Q4

REPORT INFORMATION
  Report Type: 
  Country: None (occurrence: None)
  Receive Date: 20091216
  Receipt Date: 20090715
  Transmission Date: 20100525
  Serious: No
  Sender: FDA-Public Use
  Company Number: A0797054A

PATIENT
  Age: 61 Year
  Sex: Male

DRUGS (1)
  1. COMMIT [Suspect]
     Dates: start: 20090714, end: 20090714

REACTIONS (6)
  - DIZZINESS [None]
  - DYSPEPSIA [None]
  - GLOSSODYNIA [None]
  - HICCUPS [None]
  - PALPITATIONS [None]
  - THROAT TIGHTNESS [None]
